FAERS Safety Report 18654363 (Version 7)
Quarter: 2022Q4

REPORT INFORMATION
  Report Type: Spontaneous
  Country: US (occurrence: US)
  Receive Date: 20201223
  Receipt Date: 20221124
  Transmission Date: 20230112
  Serious: Yes (Other)
  Sender: FDA-Public Use
  Company Number: US-PFIZER INC-2020505301

PATIENT
  Age: 74 Year
  Sex: Female

DRUGS (1)
  1. ESTRING [Suspect]
     Active Substance: ESTRADIOL
     Dosage: 2 MG, EVERY 3 MONTHS [1 Q 3 MONTHS]

REACTIONS (5)
  - Multiple sclerosis relapse [Unknown]
  - Dyspnoea [Unknown]
  - Speech disorder [Unknown]
  - Feeling abnormal [Unknown]
  - Cardiac disorder [Unknown]
